FAERS Safety Report 18382799 (Version 6)
Quarter: 2021Q3

REPORT INFORMATION
  Report Type: Spontaneous
  Country: US (occurrence: US)
  Receive Date: 20201014
  Receipt Date: 20210824
  Transmission Date: 20211014
  Serious: No
  Sender: FDA-Public Use
  Company Number: US-PFIZER INC-2020396943

PATIENT
  Age: 63 Year
  Sex: Female

DRUGS (1)
  1. XELJANZ XR [Suspect]
     Active Substance: TOFACITINIB CITRATE
     Indication: RHEUMATOID ARTHRITIS
     Dosage: 11 MG, DAILY
     Route: 048
     Dates: start: 2017, end: 2021

REACTIONS (10)
  - Arthralgia [Unknown]
  - Condition aggravated [Unknown]
  - Blood parathyroid hormone increased [Unknown]
  - Therapeutic response unexpected [Unknown]
  - Haemoglobin decreased [Unknown]
  - Discouragement [Unknown]
  - Depressed mood [Unknown]
  - Memory impairment [Unknown]
  - Illness [Unknown]
  - Product dose omission in error [Unknown]
